FAERS Safety Report 9048445 (Version 3)
Quarter: 2013Q2

REPORT INFORMATION
  Report Type: Spontaneous
  Country: US (occurrence: US)
  Receive Date: 20130204
  Receipt Date: 20130506
  Transmission Date: 20140414
  Serious: No
  Sender: FDA-Public Use
  Company Number: US-AMGEN-USASP2013000972

PATIENT
  Age: 67 Year
  Sex: Female
  Weight: 72.11 kg

DRUGS (3)
  1. ENBREL [Suspect]
     Indication: RHEUMATOID ARTHRITIS
     Dosage: 50 MG, QWK
     Route: 058
     Dates: start: 201107
  2. METHOTREXATE [Concomitant]
     Dosage: 10 MG, QWK
     Route: 048
     Dates: start: 201102
  3. PREDNISONE [Concomitant]
     Dosage: 3 MG, QD
     Route: 048

REACTIONS (4)
  - Oropharyngeal pain [Not Recovered/Not Resolved]
  - Dysphagia [Not Recovered/Not Resolved]
  - Injection site pain [Recovered/Resolved]
  - Bronchitis [Not Recovered/Not Resolved]
